FAERS Safety Report 4784433-X (Version None)
Quarter: 2005Q3

REPORT INFORMATION
  Report Type: 
  Country: None (occurrence: None)
  Receive Date: 20050929
  Receipt Date: 20050929
  Transmission Date: 20060218
  Serious: Yes (Other)
  Sender: FDA-Public Use
  Company Number: None

PATIENT
  Age: 39 Year
  Sex: Female
  Weight: 55 kg

DRUGS (2)
  1. MEPERIDINE HCL [Suspect]
     Indication: PAIN MANAGEMENT
     Dosage: 25 MG IV BOLUS
     Route: 040
     Dates: start: 20040209, end: 20040210
  2. PROMETHAZINE [Suspect]
     Dosage: 25 MG  IV BOLUS
     Route: 040

REACTIONS (1)
  - INJECTION SITE ERYTHEMA [None]
